FAERS Safety Report 7770327-4 (Version None)
Quarter: 2011Q3

REPORT INFORMATION
  Report Type: 
  Country: None (occurrence: None)
  Receive Date: 20110922
  Receipt Date: 20110126
  Transmission Date: 20111222
  Serious: No
  Sender: FDA-Public Use
  Company Number: US-ASTRAZENECA-2011SE04956

PATIENT
  Age: 640 Month
  Sex: Male
  Weight: 102.1 kg

DRUGS (8)
  1. METOPROLOL TARTRATE [Concomitant]
     Indication: BLOOD PRESSURE
     Route: 048
  2. ABILIFY [Concomitant]
     Route: 048
  3. NUVIGIL [Concomitant]
     Route: 048
  4. EXFORGE HCT [Concomitant]
     Indication: BLOOD PRESSURE
     Route: 048
  5. ZOCOR [Concomitant]
     Route: 048
  6. METFORMIN [Concomitant]
     Indication: DIABETES MELLITUS
     Route: 048
  7. SEROQUEL XR [Suspect]
     Indication: BIPOLAR I DISORDER
     Route: 048
     Dates: start: 20060101, end: 20110117
  8. CELEXA [Concomitant]
     Route: 048

REACTIONS (6)
  - DEPRESSED MOOD [None]
  - ASTHENIA [None]
  - SOMNOLENCE [None]
  - IRRITABILITY [None]
  - INSOMNIA [None]
  - DRUG DOSE OMISSION [None]
